FAERS Safety Report 24420297 (Version 2)
Quarter: 2024Q4

REPORT INFORMATION
  Report Type: Report from Study
  Country: US (occurrence: US)
  Receive Date: 20241010
  Receipt Date: 20241018
  Transmission Date: 20250114
  Serious: No
  Sender: ROCHE
  Company Number: US-ROCHE-3523498

PATIENT
  Age: 55 Year
  Sex: Male

DRUGS (3)
  1. ACTIVASE [Suspect]
     Active Substance: ALTEPLASE
     Indication: Cardiac arrest
     Route: 040
  2. ACTIVASE [Suspect]
     Active Substance: ALTEPLASE
     Indication: Embolism venous
     Route: 042
  3. ACTIVASE [Suspect]
     Active Substance: ALTEPLASE
     Dosage: DATE OF SERVICE: 28/JAN/2024
     Route: 042

REACTIONS (2)
  - Off label use [Unknown]
  - No adverse event [Unknown]
